FAERS Safety Report 26020659 (Version 1)
Quarter: 2025Q4

REPORT INFORMATION
  Report Type: Spontaneous
  Country: EU (occurrence: EU)
  Receive Date: 20251110
  Receipt Date: 20251110
  Transmission Date: 20260118
  Serious: Yes (Other)
  Sender: NOVO NORDISK
  Company Number: None

PATIENT
  Age: 15 Year
  Sex: Female
  Weight: 48.3 kg

DRUGS (1)
  1. NORDITROPIN [Suspect]
     Active Substance: SOMATROPIN
     Indication: Noonan syndrome
     Dosage: 2 MG, QD
     Route: 058
     Dates: start: 20210212, end: 20251001

REACTIONS (3)
  - Insulin C-peptide increased [Unknown]
  - Type 2 diabetes mellitus [Not Recovered/Not Resolved]
  - Blood glucose increased [Recovered/Resolved]

NARRATIVE: CASE EVENT DATE: 20250924
